FAERS Safety Report 20075623 (Version 1)
Quarter: 2021Q4

REPORT INFORMATION
  Report Type: Spontaneous
  Country: CA (occurrence: CA)
  Receive Date: 20211116
  Receipt Date: 20211116
  Transmission Date: 20220303
  Serious: Yes (Disabling, Other)
  Sender: FDA-Public Use
  Company Number: CA-BAXTER-2021BAX035478

PATIENT
  Age: 54 Year
  Sex: Female
  Weight: 84 kg

DRUGS (6)
  1. CYCLOPHOSPHAMIDE [Suspect]
     Active Substance: CYCLOPHOSPHAMIDE
     Indication: Product used for unknown indication
     Route: 065
  2. RUXIENCE [Suspect]
     Active Substance: RITUXIMAB-PVVR
     Indication: Granulomatosis with polyangiitis
     Dosage: EVERY 6 MONTHS
     Route: 042
  3. RUXIENCE [Suspect]
     Active Substance: RITUXIMAB-PVVR
     Dosage: EVERY 6 MONTHS
     Route: 042
     Dates: start: 20210322
  4. PREDNISONE [Concomitant]
     Active Substance: PREDNISONE
     Indication: Renal disorder
     Route: 065
     Dates: start: 20210812
  5. RAMIPRIL [Concomitant]
     Active Substance: RAMIPRIL
     Indication: Renal disorder
     Route: 065
  6. UNSPECIFIED INGREDIENT [Concomitant]
     Active Substance: UNSPECIFIED INGREDIENT
     Indication: Product used for unknown indication
     Dosage: ANTIBIOTICS NOS
     Route: 065

REACTIONS (5)
  - Disability [Unknown]
  - Cystitis [Unknown]
  - Tooth fracture [Unknown]
  - Condition aggravated [Unknown]
  - Malaise [Unknown]

NARRATIVE: CASE EVENT DATE: 20210101
